FAERS Safety Report 20543564 (Version 1)
Quarter: 2022Q1

REPORT INFORMATION
  Report Type: Spontaneous
  Country: US (occurrence: US)
  Receive Date: 20220302
  Receipt Date: 20220302
  Transmission Date: 20220423
  Serious: Yes (Other)
  Sender: FDA-Public Use
  Company Number: US-009507513-2203USA000007

PATIENT
  Sex: Female

DRUGS (10)
  1. KEYTRUDA [Suspect]
     Active Substance: PEMBROLIZUMAB
     Indication: Hepatic cancer
     Dosage: UNK
     Dates: start: 202104, end: 20210908
  2. LENVATINIB MESYLATE [Suspect]
     Active Substance: LENVATINIB MESYLATE
     Indication: Hepatic cancer
     Dosage: UNK
     Dates: start: 202104, end: 20210908
  3. OLAPARIB [Suspect]
     Active Substance: OLAPARIB
     Indication: Hepatic cancer
     Dosage: UNK
     Dates: start: 20210908
  4. OLAPARIB [Suspect]
     Active Substance: OLAPARIB
     Dosage: 300 (UNITS NOT PROVIDED)
     Dates: start: 20211227
  5. OLAPARIB [Suspect]
     Active Substance: OLAPARIB
     Dosage: 300 (UNITS NOT PROVIDED)
     Dates: start: 20220103
  6. OLAPARIB [Suspect]
     Active Substance: OLAPARIB
     Dosage: 300 (UNITS NOT PROVIDED)
     Dates: start: 20220107
  7. OLAPARIB [Suspect]
     Active Substance: OLAPARIB
     Dosage: 300 (UNITS NOT PROVIDED)
     Dates: start: 20220112
  8. OLAPARIB [Suspect]
     Active Substance: OLAPARIB
     Dosage: 450 (UNITS NOT PROVIDED)
     Dates: start: 20220117
  9. OLAPARIB [Suspect]
     Active Substance: OLAPARIB
     Dosage: 450 (UNITS NOT PROVIDED)
     Dates: start: 20220125
  10. OLAPARIB [Suspect]
     Active Substance: OLAPARIB
     Dosage: 450 (UNITS NOT PROVIDED)
     Dates: start: 20220202

REACTIONS (1)
  - Malignant neoplasm progression [Not Recovered/Not Resolved]

NARRATIVE: CASE EVENT DATE: 20210908
